FAERS Safety Report 5744038-0 (Version None)
Quarter: 2008Q2

REPORT INFORMATION
  Report Type: 
  Country: None (occurrence: None)
  Receive Date: 20080516
  Receipt Date: 20080501
  Transmission Date: 20081010
  Serious: Yes (Other)
  Sender: FDA-Public Use
  Company Number: 2008AL003722

PATIENT
  Sex: Male

DRUGS (10)
  1. AMLODIPINE BESYLATE [Suspect]
     Indication: HYPERTENSION
     Dosage: 5 MG; QD; PO
     Route: 048
     Dates: start: 20080115
  2. BISACODYL [Concomitant]
  3. OMACOR [Concomitant]
  4. FUROSEMIDE [Concomitant]
  5. AMITRIPTYLINE HCL [Concomitant]
  6. ATORVASTATIN CALCIUM [Concomitant]
  7. ACETYLSALICYLIC ACID SRT [Concomitant]
  8. NOVOLOG MIX 70/30 [Concomitant]
  9. LOSARTAN POTASSIUM [Concomitant]
  10. SODIUM CARBONATE [Concomitant]

REACTIONS (3)
  - BLOOD GLUCOSE INCREASED [None]
  - MALAISE [None]
  - PALPITATIONS [None]
